FAERS Safety Report 24418461 (Version 2)
Quarter: 2025Q1

REPORT INFORMATION
  Report Type: Spontaneous
  Country: US (occurrence: US)
  Receive Date: 20241009
  Receipt Date: 20250327
  Transmission Date: 20250408
  Serious: No
  Sender: SANOFI AVENTIS
  Company Number: US-SA-2024SA286630

PATIENT
  Age: 42 Year
  Sex: Female

DRUGS (2)
  1. DUPIXENT [Suspect]
     Active Substance: DUPILUMAB
     Indication: Asthma
     Dosage: 300 MG, QOW
     Route: 058
     Dates: start: 202407
  2. XOLAIR [Concomitant]
     Active Substance: OMALIZUMAB
     Indication: Asthma

REACTIONS (2)
  - Injection site bruising [Unknown]
  - Asthma [Recovering/Resolving]

NARRATIVE: CASE EVENT DATE: 20240901
